FAERS Safety Report 9865542 (Version 2)
Quarter: 2014Q1

REPORT INFORMATION
  Report Type: Spontaneous
  Country: US (occurrence: US)
  Receive Date: 20140203
  Receipt Date: 20140203
  Transmission Date: 20141002
  Serious: No
  Sender: FDA-Public Use
  Company Number: US-ALLERGAN-1305606US

PATIENT
  Age: 77 Year
  Sex: Female

DRUGS (10)
  1. RESTASIS [Suspect]
     Indication: DRY EYE
     Dosage: 2 GTT, BID
     Route: 047
     Dates: start: 201303
  2. COSOPT                             /01419801/ [Concomitant]
     Indication: GLAUCOMA
     Dosage: 2 GTT, QAM
     Route: 047
     Dates: start: 20130406
  3. TRAVATAN [Concomitant]
     Indication: GLAUCOMA
     Dosage: 2 GTT, QPM
     Route: 047
     Dates: start: 201302
  4. TRAVATAN [Concomitant]
     Dosage: 1 GTT, QPM
     Route: 047
  5. TIMOLOL [Concomitant]
     Indication: GLAUCOMA
     Dosage: UNK
     Route: 047
     Dates: start: 20130406
  6. ZADITOR                            /00495201/ [Concomitant]
     Indication: HYPERSENSITIVITY
     Dosage: 2 GTT, QD
     Route: 047
  7. REFRESH P.M. [Concomitant]
     Indication: PRODUCT USED FOR UNKNOWN INDICATION
     Dosage: UNK
     Route: 047
  8. VALTREX [Concomitant]
     Indication: HERPES ZOSTER
     Dosage: UNK UNK, PRN
     Route: 048
  9. TACOLNEX CREAM [Concomitant]
     Indication: PSORIASIS
     Dosage: UNK, PRN
     Route: 061
  10. CLARITIN                           /00413701/ [Concomitant]
     Indication: PRODUCT USED FOR UNKNOWN INDICATION
     Dosage: UNK
     Route: 048

REACTIONS (1)
  - Intraocular pressure increased [Recovering/Resolving]
